FAERS Safety Report 12614778 (Version 4)
Quarter: 2016Q4

REPORT INFORMATION
  Report Type: Spontaneous
  Country: JP (occurrence: JP)
  Receive Date: 20160802
  Receipt Date: 20161221
  Transmission Date: 20170207
  Serious: Yes (Hospitalization, Other)
  Sender: FDA-Public Use
  Company Number: JP-GLAXOSMITHKLINE-JP2016JPN108420

PATIENT
  Age: 30 Year
  Sex: Female

DRUGS (7)
  1. KIPRES [Suspect]
     Active Substance: MONTELUKAST SODIUM
     Indication: ASTHMA
     Dosage: 10 MG, QD
     Route: 048
     Dates: start: 20160721, end: 20160726
  2. CLARITIN [Suspect]
     Active Substance: LORATADINE
     Dosage: 10 MG, QD
     Route: 048
     Dates: start: 20160721, end: 20160726
  3. MEDICON (DEXTROMETHORPHAN HYDROBROMIDE HYDRATE) [Concomitant]
     Indication: BRONCHITIS
     Dosage: 15 MG, TID
     Dates: start: 20160721, end: 20160726
  4. MUCODYNE [Concomitant]
     Active Substance: CARBOCYSTEINE
     Dosage: 500 MG, TID
     Dates: start: 20160721, end: 20160726
  5. SERETIDE [Suspect]
     Active Substance: FLUTICASONE PROPIONATE\SALMETEROL XINAFOATE
     Indication: ASTHMA
     Dosage: 250 ?G, BID
     Route: 055
     Dates: start: 20160721, end: 20160726
  6. SULTANOL [Suspect]
     Active Substance: ALBUTEROL SULFATE
     Indication: ASTHMA
     Dosage: 200 ?G, 3-4 TIMES/DAY
     Route: 055
     Dates: start: 20160716, end: 20160721
  7. CLARITH [Concomitant]
     Active Substance: CLARITHROMYCIN
     Dosage: 200 MG, BID
     Dates: start: 20160721, end: 20160726

REACTIONS (8)
  - Abortion early [Recovered/Resolved]
  - Sputum increased [Recovering/Resolving]
  - Asthma [Unknown]
  - Respiratory disorder [Unknown]
  - Dyspnoea [Recovering/Resolving]
  - Cough [Recovering/Resolving]
  - Exposure during pregnancy [Unknown]
  - Vaginal haemorrhage [Unknown]

NARRATIVE: CASE EVENT DATE: 20160721
